FAERS Safety Report 25384150 (Version 1)
Quarter: 2025Q2

REPORT INFORMATION
  Report Type: Other
  Country: DE (occurrence: DE)
  Receive Date: 20250602
  Receipt Date: 20250602
  Transmission Date: 20250716
  Serious: Yes (Hospitalization)
  Sender: BIONPHARMA INC.
  Company Number: DE-Bion-014985

PATIENT
  Age: 67 Year
  Sex: Male

DRUGS (8)
  1. IBUPROFEN [Suspect]
     Active Substance: IBUPROFEN
     Indication: Pain management
  2. FENTANYL [Concomitant]
     Active Substance: FENTANYL
     Indication: Pain management
  3. TRAMADOL [Concomitant]
     Active Substance: TRAMADOL
     Indication: Pain management
  4. LEVETIRACETAM [Concomitant]
     Active Substance: LEVETIRACETAM
     Indication: Seizure prophylaxis
  5. DESMOPRESSIN [Concomitant]
     Active Substance: DESMOPRESSIN
     Indication: Diabetes insipidus
     Route: 045
  6. HYDROCORTISONE [Concomitant]
     Active Substance: HYDROCORTISONE
     Indication: Postoperative care
  7. LEVOTHYROXINE SODIUM [Concomitant]
     Active Substance: LEVOTHYROXINE SODIUM
     Indication: Postoperative care
  8. TESTOSTERONE [Concomitant]
     Active Substance: TESTOSTERONE
     Indication: Postoperative care

REACTIONS (1)
  - Hyponatraemia [Recovered/Resolved]
